FAERS Safety Report 8189822-1 (Version None)
Quarter: 2012Q1

REPORT INFORMATION
  Report Type: 
  Country: None (occurrence: None)
  Receive Date: 20120307
  Receipt Date: 20110812
  Transmission Date: 20120608
  Serious: No
  Sender: FDA-Public Use
  Company Number: US-GLAXOSMITHKLINE-A0940919A

PATIENT
  Age: 69 Year
  Sex: Female

DRUGS (4)
  1. METFORMIN HCL [Concomitant]
  2. ROPINIROLE [Suspect]
     Indication: DIABETIC NEUROPATHY
     Route: 048
  3. ASPIRIN [Concomitant]
  4. BENAZEPRIL HYDROCHLORIDE [Concomitant]

REACTIONS (1)
  - DYSPNOEA [None]
